FAERS Safety Report 8744349 (Version 2)
Quarter: 2013Q4

REPORT INFORMATION
  Report Type: Report from Study
  Country: US (occurrence: US)
  Receive Date: 20120825
  Receipt Date: 20131101
  Transmission Date: 20140711
  Serious: No
  Sender: FDA-Public Use
  Company Number: US-009507513-1208USA002387

PATIENT
  Sex: Female
  Weight: 45.35 kg

DRUGS (3)
  1. PEGINTRON [Suspect]
     Dosage: INJECT 0.4 ML, QW
     Route: 058
  2. REBETOL [Suspect]
     Route: 048
  3. TELAPREVIR [Concomitant]
     Dosage: INCIVEK
     Route: 048

REACTIONS (2)
  - Cough [Unknown]
  - Respiratory tract congestion [Unknown]
